FAERS Safety Report 13968622 (Version 1)
Quarter: 2017Q3

REPORT INFORMATION
  Report Type: Report from Study
  Country: IT (occurrence: IT)
  Receive Date: 20170914
  Receipt Date: 20170914
  Transmission Date: 20171128
  Serious: Yes (Hospitalization, Other)
  Sender: FDA-Public Use
  Company Number: IT-ACTELION-A-CH2013-90939

PATIENT
  Age: 9 Year
  Sex: Male
  Weight: 28.6 kg

DRUGS (2)
  1. ZAVESCA [Suspect]
     Active Substance: MIGLUSTAT
     Indication: NIEMANN-PICK DISEASE
     Dosage: 200 MG, BID
     Route: 048
  2. ZAVESCA [Suspect]
     Active Substance: MIGLUSTAT
     Dosage: 100 MG, TID
     Route: 048
     Dates: start: 20070512

REACTIONS (3)
  - Splenectomy [Unknown]
  - Epstein-Barr virus infection [Recovered/Resolved]
  - Thrombocytopenia [Unknown]

NARRATIVE: CASE EVENT DATE: 20130417
